FAERS Safety Report 4701166-6 (Version None)
Quarter: 2005Q2

REPORT INFORMATION
  Report Type: 
  Country: None (occurrence: None)
  Receive Date: 20050628
  Receipt Date: 20050622
  Transmission Date: 20051028
  Serious: Yes (Hospitalization, Other)
  Sender: FDA-Public Use
  Company Number: 20040502107

PATIENT
  Age: 39 Year
  Sex: Male

DRUGS (12)
  1. CEFTAZIDIME [Suspect]
     Dosage: 4G PER DAY
     Route: 042
     Dates: start: 20031107
  2. CEFOZOPRAN [Suspect]
     Dosage: 4G PER DAY
     Route: 042
     Dates: start: 20031014
  3. MEROPENEM [Suspect]
     Dosage: 2G PER DAY
     Route: 042
     Dates: start: 20031020, end: 20031110
  4. AMIKACIN [Suspect]
     Dosage: 400MG PER DAY
     Route: 042
     Dates: start: 20031018, end: 20031110
  5. MICAFUNGIN [Suspect]
     Dosage: 150MG PER DAY
     Route: 042
     Dates: start: 20031020, end: 20031110
  6. LEUSTATIN [Suspect]
     Dosage: 8MG PER DAY
     Route: 042
     Dates: start: 20030926, end: 20030930
  7. MINOCYCLINE HCL [Suspect]
     Dosage: 200MG PER DAY
     Route: 042
     Dates: start: 20031107
  8. LOXOPROFEN SODIUM [Suspect]
     Dosage: 60MG AS REQUIRED
     Route: 048
     Dates: start: 20030926
  9. FLUCONAZOLE [Concomitant]
     Dosage: 100MG PER DAY
     Dates: start: 20030926
  10. ZOPICLONE [Concomitant]
     Indication: INSOMNIA
     Route: 048
     Dates: start: 20030926
  11. SULFAMETHOXAZOLE + TRIMETHOPRIM [Concomitant]
     Indication: INFECTION PROPHYLAXIS
     Route: 048
     Dates: start: 20030926
  12. TEPRENONE [Concomitant]
     Route: 048
     Dates: start: 20030926

REACTIONS (17)
  - ALANINE AMINOTRANSFERASE INCREASED [None]
  - ASPARTATE AMINOTRANSFERASE INCREASED [None]
  - BLOOD ALBUMIN DECREASED [None]
  - BLOOD ALKALINE PHOSPHATASE INCREASED [None]
  - BLOOD CHLORIDE DECREASED [None]
  - BLOOD LACTATE DEHYDROGENASE INCREASED [None]
  - BLOOD POTASSIUM INCREASED [None]
  - BLOOD SODIUM DECREASED [None]
  - C-REACTIVE PROTEIN INCREASED [None]
  - ELECTROLYTE IMBALANCE [None]
  - GASTRITIS [None]
  - HAEMATOCRIT DECREASED [None]
  - HAEMOGLOBIN DECREASED [None]
  - HEPATIC FUNCTION ABNORMAL [None]
  - PROTEIN TOTAL DECREASED [None]
  - RED BLOOD CELL COUNT DECREASED [None]
  - TRANSAMINASES INCREASED [None]
